FAERS Safety Report 9415161 (Version 3)
Quarter: 2013Q3

REPORT INFORMATION
  Report Type: Report from Study
  Country: FR (occurrence: FR)
  Receive Date: 20130723
  Receipt Date: 20130808
  Transmission Date: 20140515
  Serious: Yes (Other)
  Sender: FDA-Public Use
  Company Number: FR-AMGEN-FRACT2013020058

PATIENT
  Age: 76 Year
  Sex: Female
  Weight: 68 kg

DRUGS (9)
  1. PANITUMUMAB [Suspect]
     Indication: GASTROOESOPHAGEAL CANCER
     Dosage: 378 MG, UNK
     Route: 042
     Dates: start: 20120629, end: 20121003
  2. OXALIPLATIN [Concomitant]
     Indication: GASTROOESOPHAGEAL CANCER
     Dosage: 110 MG, UNK
     Route: 042
     Dates: start: 20120629, end: 20121003
  3. FOLINIC ACID [Concomitant]
     Indication: GASTROOESOPHAGEAL CANCER
     Dosage: 680 MG, UNK
     Route: 042
     Dates: start: 20120629, end: 20121003
  4. 5-FU [Concomitant]
     Indication: GASTROOESOPHAGEAL CANCER
     Dosage: UNK
     Route: 042
     Dates: start: 20120629, end: 20121005
  5. COZAAR [Concomitant]
     Indication: HYPERTENSION
     Dosage: UNK
     Route: 048
     Dates: start: 20111026
  6. VASTEN [Concomitant]
     Indication: HYPERLIPIDAEMIA
     Dosage: 20 MG, UNK
     Route: 048
     Dates: start: 20111026
  7. KARDEGIC [Concomitant]
     Indication: ANTIPLATELET THERAPY
     Dosage: UNK
     Route: 048
     Dates: start: 20111026
  8. GRANOCYTE [Concomitant]
     Dosage: UNK
  9. NEORECORMON [Concomitant]
     Dosage: 30000 UNIT, QWK
     Route: 058

REACTIONS (1)
  - Asthenia [Not Recovered/Not Resolved]
